FAERS Safety Report 14906170 (Version 1)
Quarter: 2018Q2

REPORT INFORMATION
  Report Type: Spontaneous
  Country: US (occurrence: US)
  Receive Date: 20180517
  Receipt Date: 20180517
  Transmission Date: 20180711
  Serious: No
  Sender: FDA-Public Use
  Company Number: US-SA-2018SA115040

PATIENT
  Age: 86 Year
  Sex: Female
  Weight: 41.73 kg

DRUGS (2)
  1. SOLOSTAR [Suspect]
     Active Substance: DEVICE
     Indication: TYPE 2 DIABETES MELLITUS
  2. LANTUS SOLOSTAR [Suspect]
     Active Substance: INSULIN GLARGINE
     Indication: TYPE 2 DIABETES MELLITUS
     Dosage: DOSE:17-24 UNITS
     Route: 051

REACTIONS (5)
  - Hypoglycaemia [Unknown]
  - Intentional product misuse [Unknown]
  - Device issue [Unknown]
  - Product use issue [Unknown]
  - Glycosylated haemoglobin increased [Unknown]
